FAERS Safety Report 11251363 (Version 1)
Quarter: 2015Q3

REPORT INFORMATION
  Report Type: Spontaneous
  Country: US (occurrence: US)
  Receive Date: 20150708
  Receipt Date: 20150708
  Transmission Date: 20151125
  Serious: No
  Sender: FDA-Public Use
  Company Number: US-ELI_LILLY_AND_COMPANY-US201112003422

PATIENT
  Sex: Female

DRUGS (5)
  1. LAMICTAL [Concomitant]
     Active Substance: LAMOTRIGINE
  2. CLONIDINE. [Concomitant]
     Active Substance: CLONIDINE
  3. SYMBYAX [Suspect]
     Active Substance: FLUOXETINE HYDROCHLORIDE\OLANZAPINE
     Indication: DEPRESSION
     Dosage: 3/25 MG
     Dates: start: 20111202
  4. SYMBYAX [Suspect]
     Active Substance: FLUOXETINE HYDROCHLORIDE\OLANZAPINE
     Dosage: 6/50 MG, QD
     Dates: start: 201112
  5. METHYLPHENIDATE. [Concomitant]
     Active Substance: METHYLPHENIDATE

REACTIONS (6)
  - Balance disorder [Unknown]
  - Tremor [Unknown]
  - Vasodilatation [Unknown]
  - Dry mouth [Unknown]
  - Decreased appetite [Unknown]
  - Expired product administered [Unknown]

NARRATIVE: CASE EVENT DATE: 201112
